FAERS Safety Report 5005817-0 (Version None)
Quarter: 2006Q2

REPORT INFORMATION
  Report Type: 
  Country: None (occurrence: None)
  Receive Date: 20060517
  Receipt Date: 20060517
  Transmission Date: 20061013
  Serious: Yes (Hospitalization)
  Sender: FDA-Public Use
  Company Number: None

PATIENT
  Age: 84 Year
  Sex: Male

DRUGS (5)
  1. INSULIN INSULATARD NPH NORDISK [Suspect]
     Indication: DIABETES MELLITUS INSULIN-DEPENDENT
     Dosage: 55 UNITS QAM/10 UNITS QPM
     Dates: start: 19990401
  2. FESO4 [Concomitant]
  3. FOSINOPRIL SODIUM [Concomitant]
  4. LACTULOSE [Concomitant]
  5. OMEPRAZOLE [Concomitant]

REACTIONS (1)
  - HYPOGLYCAEMIA [None]
